FAERS Safety Report 4762905-1 (Version None)
Quarter: 2005Q3

REPORT INFORMATION
  Report Type: 
  Country: None (occurrence: None)
  Receive Date: 20050907
  Receipt Date: 20050831
  Transmission Date: 20060218
  Serious: Yes (Other)
  Sender: FDA-Public Use
  Company Number: PHBS2005IT12918

PATIENT
  Age: 56 Year
  Sex: Female

DRUGS (5)
  1. ZOMETA [Suspect]
     Indication: METASTASES TO BONE
     Dosage: 4 MG, QMO
     Route: 042
     Dates: start: 20020901
  2. MITOXANTRONE [Concomitant]
     Dosage: 20 MG/D
     Route: 042
  3. CAPECITABINE [Concomitant]
     Route: 065
  4. VINORELBINE [Concomitant]
     Route: 065
  5. BIAXIN [Concomitant]
     Route: 065

REACTIONS (2)
  - ASEPTIC NECROSIS BONE [None]
  - OSTEONECROSIS [None]
